FAERS Safety Report 5734561-7 (Version None)
Quarter: 2008Q2

REPORT INFORMATION
  Report Type: 
  Country: None (occurrence: None)
  Receive Date: 20080508
  Receipt Date: 20080428
  Transmission Date: 20081010
  Serious: Yes (Hospitalization, Other)
  Sender: FDA-Public Use
  Company Number: 19223

PATIENT
  Age: 31 Year
  Sex: Male

DRUGS (2)
  1. CARBOPLATIN [Suspect]
     Indication: NON-SMALL CELL LUNG CANCER STAGE II
     Dates: end: 20070401
  2. GEMCITABINE [Suspect]
     Indication: NON-SMALL CELL LUNG CANCER STAGE II
     Dosage: 1250 MG/M2 PER_CYCLE
     Dates: end: 20070401

REACTIONS (7)
  - DRUG TOXICITY [None]
  - MUCOSAL INFLAMMATION [None]
  - NEUTROPENIA [None]
  - PNEUMONITIS [None]
  - PRURITUS [None]
  - PYREXIA [None]
  - RASH [None]
